FAERS Safety Report 4863885-0 (Version None)
Quarter: 2005Q4

REPORT INFORMATION
  Report Type: 
  Country: None (occurrence: None)
  Receive Date: 20051222
  Receipt Date: 20051216
  Transmission Date: 20060501
  Serious: Yes (Hospitalization)
  Sender: FDA-Public Use
  Company Number: DE-BRISTOL-MYERS SQUIBB COMPANY-13221130

PATIENT
  Age: 64 Year
  Sex: Female
  Weight: 61 kg

DRUGS (5)
  1. CYCLOPHOSPHAMIDE [Suspect]
     Indication: BREAST CANCER
     Route: 042
     Dates: start: 20051103, end: 20051103
  2. NEORECORMON [Concomitant]
     Route: 058
     Dates: start: 20051103
  3. NEULASTA [Concomitant]
     Route: 058
     Dates: start: 20051104
  4. UROMITEXAN [Concomitant]
     Dates: start: 20051103, end: 20051103
  5. CIPROBAY [Concomitant]
     Route: 048
     Dates: start: 20051107

REACTIONS (2)
  - LEUKOPENIA [None]
  - VISUAL ACUITY REDUCED [None]
